FAERS Safety Report 19180156 (Version 1)
Quarter: 2021Q2

REPORT INFORMATION
  Report Type: Spontaneous
  Country: US (occurrence: US)
  Receive Date: 20210423
  Receipt Date: 20210423
  Transmission Date: 20210717
  Serious: Yes (Hospitalization)
  Sender: FDA-Public Use
  Company Number: None

PATIENT
  Age: 85 Year
  Sex: Male
  Weight: 60.7 kg

DRUGS (1)
  1. DARATUMUMAB [Suspect]
     Active Substance: DARATUMUMAB
     Indication: PLASMA CELL MYELOMA
     Route: 058
     Dates: start: 20191028

REACTIONS (6)
  - Mental status changes [None]
  - Atelectasis [None]
  - Gastrointestinal haemorrhage [None]
  - Melaena [None]
  - Pneumonia [None]
  - Pneumonia aspiration [None]

NARRATIVE: CASE EVENT DATE: 20210107
